FAERS Safety Report 8143995-5 (Version None)
Quarter: 2012Q1

REPORT INFORMATION
  Report Type: 
  Country: None (occurrence: None)
  Receive Date: 20120217
  Receipt Date: 20120217
  Transmission Date: 20120608
  Serious: No
  Sender: FDA-Public Use
  Company Number: None

PATIENT
  Sex: Female
  Weight: 7.2574 kg

DRUGS (1)
  1. HYLAND'S TEETHING TABLETS [Suspect]
     Dosage: 2-3 TABLETS PER TIME

REACTIONS (2)
  - SOMNOLENCE [None]
  - IRRITABILITY [None]
